FAERS Safety Report 6955294-5 (Version None)
Quarter: 2010Q3

REPORT INFORMATION
  Report Type: 
  Country: None (occurrence: None)
  Receive Date: 20100830
  Receipt Date: 20100819
  Transmission Date: 20110219
  Serious: Yes (Hospitalization, Other)
  Sender: FDA-Public Use
  Company Number: PHHO2010GB12735

PATIENT
  Age: 76 Year
  Sex: Male
  Weight: 69.4 kg

DRUGS (7)
  1. ZOLEDRONIC ACID [Suspect]
     Indication: RENAL CANCER
     Dosage: 4 MG CYCLIC
     Dates: start: 20090420, end: 20090518
  2. SUNITINIB MALATE [Suspect]
     Indication: RENAL CANCER
  3. DEXAMETHASONE [Concomitant]
  4. LEVOTHYROXINE [Concomitant]
  5. CODEINE SULFATE [Concomitant]
  6. ACETAMINOPHEN [Concomitant]
  7. OMEPRAZOLE [Concomitant]

REACTIONS (3)
  - DEHYDRATION [None]
  - DIARRHOEA [None]
  - OSTEONECROSIS OF JAW [None]
